FAERS Safety Report 13854493 (Version 1)
Quarter: 2017Q3

REPORT INFORMATION
  Report Type: Spontaneous
  Country: US (occurrence: US)
  Receive Date: 20170809
  Receipt Date: 20170809
  Transmission Date: 20171127
  Serious: Yes (Other)
  Sender: FDA-Public Use
  Company Number: US-PROMETHEUS LABORATORIES-2017PL000061

PATIENT
  Age: 62 Year
  Sex: Female

DRUGS (4)
  1. VEMURAFENIB. [Suspect]
     Active Substance: VEMURAFENIB
     Indication: METASTATIC MALIGNANT MELANOMA
     Dosage: UNK UNKNOWN, UNK
     Route: 065
     Dates: start: 201208
  2. PROLEUKIN [Suspect]
     Active Substance: ALDESLEUKIN
     Indication: METASTATIC MALIGNANT MELANOMA
     Dosage: UNK UNKNOWN, UNK
     Route: 065
     Dates: start: 201212
  3. PROLEUKIN [Suspect]
     Active Substance: ALDESLEUKIN
     Indication: MYCOSIS FUNGOIDES
     Dosage: UNK UNKNOWN, UNK
     Dates: start: 201304
  4. VEMURAFENIB. [Suspect]
     Active Substance: VEMURAFENIB
     Indication: MYCOSIS FUNGOIDES

REACTIONS (2)
  - Second primary malignancy [Recovered/Resolved]
  - Lymphoproliferative disorder [Recovered/Resolved]

NARRATIVE: CASE EVENT DATE: 201512
